FAERS Safety Report 19975496 (Version 2)
Quarter: 2021Q4

REPORT INFORMATION
  Report Type: Report from Study
  Country: US (occurrence: US)
  Receive Date: 20211020
  Receipt Date: 20211027
  Transmission Date: 20220304
  Serious: Yes (Other)
  Sender: FDA-Public Use
  Company Number: US-ALLERGAN-2135179US

PATIENT
  Sex: Female

DRUGS (5)
  1. BOTULINUM TOXIN TYPE A [Suspect]
     Active Substance: BOTULINUM TOXIN TYPE A
     Indication: Migraine
     Dosage: UNK UNK, SINGLE
  2. ABILIFY [Concomitant]
     Active Substance: ARIPIPRAZOLE
  3. BUPROPION [Concomitant]
     Active Substance: BUPROPION
  4. CYMBALTA [Concomitant]
     Active Substance: DULOXETINE HYDROCHLORIDE
  5. LAMICTAL [Concomitant]
     Active Substance: LAMOTRIGINE

REACTIONS (2)
  - Systemic lupus erythematosus [Recovering/Resolving]
  - Foot fracture [Recovering/Resolving]

NARRATIVE: CASE EVENT DATE: 20190101
